FAERS Safety Report 12239365 (Version 1)
Quarter: 2016Q2

REPORT INFORMATION
  Report Type: Report from Study
  Country: US (occurrence: US)
  Receive Date: 20160405
  Receipt Date: 20160405
  Transmission Date: 20160815
  Serious: No
  Sender: FDA-Public Use
  Company Number: ADR-2014-01182

PATIENT
  Age: 81 Year
  Sex: Male

DRUGS (17)
  1. CLONIDINE. [Suspect]
     Active Substance: CLONIDINE
     Dosage: 66.94MCG/DAY
     Route: 037
     Dates: end: 20140610
  2. DILAUDID [Suspect]
     Active Substance: HYDROMORPHONE HYDROCHLORIDE
     Dosage: 50.03 MCG/DAY
     Route: 037
     Dates: start: 20140805, end: 20141014
  3. COMPOUNDED BACLOFEN [Suspect]
     Active Substance: BACLOFEN
     Dosage: 178.52MCG/DAY
     Route: 037
     Dates: end: 20140610
  4. CLONIDINE. [Suspect]
     Active Substance: CLONIDINE
     Dosage: 47.49 MCG/DAY
     Route: 037
     Dates: start: 20141014, end: 20141124
  5. DILAUDID [Suspect]
     Active Substance: HYDROMORPHONE HYDROCHLORIDE
     Dosage: 37.59 MCG/DAY
     Route: 037
     Dates: start: 20141124
  6. CLONIDINE. [Suspect]
     Active Substance: CLONIDINE
     Dosage: 50.03 MCG/DAY
     Route: 037
     Dates: start: 20140805, end: 20141014
  7. CLONIDINE. [Suspect]
     Active Substance: CLONIDINE
     Dosage: 63.04 MCG/DAY
     Route: 037
     Dates: start: 20140610
  8. LYRICA [Concomitant]
     Active Substance: PREGABALIN
  9. CLONIDINE. [Suspect]
     Active Substance: CLONIDINE
     Dosage: 37.59 MCG/DAY
     Route: 037
     Dates: start: 20141124
  10. BACLOFEN. [Suspect]
     Active Substance: BACLOFEN
     Dosage: 168.11 MCG/DAY
     Route: 037
     Dates: start: 20140610
  11. BACLOFEN. [Suspect]
     Active Substance: BACLOFEN
     Dosage: 126.65 MCG/DAY
     Route: 037
     Dates: start: 20141014, end: 20141124
  12. BACLOFEN. [Suspect]
     Active Substance: BACLOFEN
     Dosage: 100.24 MCG/DAY
     Route: 037
     Dates: start: 20141124
  13. DILAUDID [Suspect]
     Active Substance: HYDROMORPHONE HYDROCHLORIDE
     Dosage: 63.04 MCG/DAY
     Route: 037
     Dates: start: 20140610
  14. DILAUDID [Suspect]
     Active Substance: HYDROMORPHONE HYDROCHLORIDE
     Dosage: 47.49 MCG/DAY
     Route: 037
     Dates: start: 20141014, end: 20141124
  15. DILAUDID [Suspect]
     Active Substance: HYDROMORPHONE HYDROCHLORIDE
     Dosage: 66.94MCG/DAY
     Route: 037
     Dates: end: 20140610
  16. OXYCODONE-ACETAMINOPHEN [Concomitant]
     Active Substance: ACETAMINOPHEN\OXYCODONE HYDROCHLORIDE
  17. BACLOFEN. [Suspect]
     Active Substance: BACLOFEN
     Dosage: 133.41 MCG/DAY
     Route: 037
     Dates: start: 20140805, end: 20141014

REACTIONS (3)
  - Adverse drug reaction [Recovered/Resolved]
  - Sedation [Recovered/Resolved]
  - Muscular weakness [Recovered/Resolved]
